FAERS Safety Report 7359667-0 (Version None)
Quarter: 2011Q1

REPORT INFORMATION
  Report Type: 
  Country: None (occurrence: None)
  Receive Date: 20110317
  Receipt Date: 20100730
  Transmission Date: 20110831
  Serious: No
  Sender: FDA-Public Use
  Company Number: US-PFIZER INC-2010096940

PATIENT
  Sex: Male
  Weight: 98 kg

DRUGS (3)
  1. NORVASC [Suspect]
     Indication: CARDIAC PACEMAKER INSERTION
  2. METOPROLOL [Concomitant]
     Indication: HYPERTENSION
     Dosage: 100 MG, UNK
  3. NORVASC [Suspect]
     Indication: BLOOD GLUCOSE INCREASED
     Dosage: 5 MG, 1X/DAY
     Route: 048
     Dates: start: 20080101

REACTIONS (4)
  - FLATULENCE [None]
  - BLOOD GLUCOSE FLUCTUATION [None]
  - ABDOMINAL DISCOMFORT [None]
  - CHEST PAIN [None]
